FAERS Safety Report 20179676 (Version 1)
Quarter: 2021Q4

REPORT INFORMATION
  Report Type: Spontaneous
  Country: DK (occurrence: DK)
  Receive Date: 20211214
  Receipt Date: 20211214
  Transmission Date: 20220303
  Serious: Yes (Hospitalization)
  Sender: FDA-Public Use
  Company Number: None

PATIENT
  Age: 78 Year
  Sex: Female
  Weight: 69 kg

DRUGS (4)
  1. IBUPROFEN [Suspect]
     Active Substance: IBUPROFEN
     Indication: Pain
     Dosage: STRENGTH: 400 MG,UNIT DOSE:1200MILLIGRAM
     Route: 048
     Dates: start: 202107, end: 20210906
  2. ALENDRONAT [Suspect]
     Active Substance: ALENDRONATE SODIUM
     Indication: Osteoporosis
     Dosage: ^AUROBINDO^,STRENGTH: 70 MG,UNIT DOSE:70MILLIGRAM
     Route: 048
     Dates: start: 202107, end: 20210906
  3. JERN C [Concomitant]
     Indication: Iron deficiency
     Dosage: STRENGTH: 60 + 330 MG,UNIT DOSE:1DOSAGEFORM
     Route: 048
     Dates: start: 20210702
  4. AMLODIPINE [Concomitant]
     Active Substance: AMLODIPINE BESYLATE
     Indication: Hypertension
     Dosage: STRENGTH: 5 MG
     Route: 048
     Dates: start: 20210706, end: 20210906

REACTIONS (1)
  - Blood loss anaemia [Unknown]

NARRATIVE: CASE EVENT DATE: 20210901
